FAERS Safety Report 5840737-0 (Version None)
Quarter: 2008Q3

REPORT INFORMATION
  Report Type: 
  Country: None (occurrence: None)
  Receive Date: 20080811
  Receipt Date: 20080730
  Transmission Date: 20090109
  Serious: Yes (Other)
  Sender: FDA-Public Use
  Company Number: FR-PFIZER INC-2007042846

PATIENT
  Sex: Female
  Weight: 50 kg

DRUGS (4)
  1. CHANTIX [Suspect]
     Indication: SMOKING CESSATION THERAPY
     Route: 048
     Dates: start: 20070314, end: 20070322
  2. LAMICTAL [Concomitant]
     Indication: EPILEPSY
  3. LAMICTAL [Concomitant]
     Indication: BIPOLAR DISORDER
  4. ANTIEPILEPTICS [Concomitant]

REACTIONS (1)
  - CONVULSION [None]
